FAERS Safety Report 6953508-9 (Version None)
Quarter: 2010Q3

REPORT INFORMATION
  Report Type: 
  Country: None (occurrence: None)
  Receive Date: 20100829
  Receipt Date: 20100615
  Transmission Date: 20110219
  Serious: No
  Sender: FDA-Public Use
  Company Number: US-ABBOTT-10P-163-0652509-00

PATIENT
  Age: 68 Year
  Sex: Male

DRUGS (11)
  1. NIASPAN [Suspect]
     Indication: BLOOD CHOLESTEROL INCREASED
     Route: 048
     Dates: start: 20090101
  2. NIASPAN [Suspect]
     Indication: BLOOD CHOLESTEROL INCREASED
     Route: 048
  3. NIASPAN [Suspect]
     Indication: BLOOD CHOLESTEROL INCREASED
     Route: 048
     Dates: end: 20100501
  4. NIASPAN [Suspect]
     Dosage: DAILY
     Dates: start: 20100501, end: 20100501
  5. NIASPAN [Suspect]
     Dosage: DAILY
     Dates: start: 20100615
  6. VICTOZA [Suspect]
     Indication: DIABETES MELLITUS
     Dosage: DAILY
     Dates: start: 20100501, end: 20100501
  7. VICTOZA [Suspect]
     Dosage: DAILY
     Dates: start: 20100608
  8. WINE [Suspect]
     Indication: PRODUCT USED FOR UNKNOWN INDICATION
     Dates: start: 20100501, end: 20100501
  9. CARDIAC MEDICATION [Concomitant]
     Indication: CORONARY ARTERY DISEASE
  10. CARDIAC MEDICATION [Concomitant]
     Indication: CORONARY ARTERY BYPASS
  11. BLOOD PRESSURE MEDICATION [Concomitant]
     Indication: HYPERTENSION
     Dosage: DAILY

REACTIONS (3)
  - DRUG INTERACTION [None]
  - FATIGUE [None]
  - URTICARIA [None]
